FAERS Safety Report 5381532-9 (Version None)
Quarter: 2007Q3

REPORT INFORMATION
  Report Type: 
  Country: None (occurrence: None)
  Receive Date: 20070709
  Receipt Date: 20070705
  Transmission Date: 20080115
  Serious: Yes (Life-Threatening, Hospitalization)
  Sender: FDA-Public Use
  Company Number: IT-JNJFOC-20041105669

PATIENT
  Sex: Male
  Weight: 65 kg

DRUGS (14)
  1. BLINDED; ABCIXIMA [Suspect]
     Route: 042
  2. BLINDED; ABCIXIMA [Suspect]
     Indication: ACUTE MYOCARDIAL INFARCTION
     Route: 042
  3. RETEPLASE [Suspect]
     Route: 042
  4. RETEPLASE [Suspect]
     Indication: ACUTE MYOCARDIAL INFARCTION
     Route: 042
  5. PLACEBO [Suspect]
     Indication: ACUTE MYOCARDIAL INFARCTION
     Route: 042
  6. WARFARIN SODIUM [Concomitant]
     Indication: ANTICOAGULANT THERAPY
     Route: 048
  7. AMIODARONE [Concomitant]
     Indication: ARRHYTHMIA
     Route: 048
  8. STATIN [Concomitant]
     Indication: HYPERCHOLESTEROLAEMIA
     Route: 048
  9. LASIX [Concomitant]
     Indication: DIURETIC THERAPY
     Route: 048
  10. PERINDOPRIL ERBUMINE [Concomitant]
     Dosage: 1/2 DAILY
     Route: 048
  11. ASPIRIN [Concomitant]
  12. DIGOXIN [Concomitant]
  13. PROMAZINE HYDROCHLORIDE [Concomitant]
  14. TICLOPIDINE HCL [Concomitant]

REACTIONS (5)
  - ATRIAL FIBRILLATION [None]
  - CARDIAC ARREST [None]
  - MITRAL VALVE INCOMPETENCE [None]
  - MITRAL VALVE PROLAPSE [None]
  - VENTRICULAR FIBRILLATION [None]
